FAERS Safety Report 24930088 (Version 2)
Quarter: 2025Q1

REPORT INFORMATION
  Report Type: Spontaneous
  Country: US (occurrence: US)
  Receive Date: 20250205
  Receipt Date: 20250220
  Transmission Date: 20250408
  Serious: No
  Sender: ABBVIE
  Company Number: US-ABBVIE-6116029

PATIENT
  Age: 38 Year
  Sex: Female
  Weight: 48 kg

DRUGS (1)
  1. LATISSE [Suspect]
     Active Substance: BIMATOPROST
     Indication: Growth of eyelashes
     Dosage: FORM STRENGTH  0.3MG/ML SOL, ONCE A DAY BEFORE BEDTIME
     Route: 061
     Dates: start: 202411, end: 20250126

REACTIONS (5)
  - Hypersensitivity [Unknown]
  - Paraesthesia [Not Recovered/Not Resolved]
  - Eyelid irritation [Not Recovered/Not Resolved]
  - Abnormal sensation in eye [Unknown]
  - Eyelid pain [Not Recovered/Not Resolved]

NARRATIVE: CASE EVENT DATE: 20241101
